FAERS Safety Report 5716975-4 (Version None)
Quarter: 2008Q2

REPORT INFORMATION
  Report Type: 
  Country: None (occurrence: None)
  Receive Date: 20080424
  Receipt Date: 20080224
  Transmission Date: 20081010
  Serious: Yes (Other)
  Sender: FDA-Public Use
  Company Number: DE-PFIZER INC-2008035043

PATIENT
  Sex: Female

DRUGS (1)
  1. ATARAX [Suspect]
     Dosage: DAILY DOSE:200MG
     Route: 048
     Dates: start: 20080224, end: 20080224

REACTIONS (3)
  - FATIGUE [None]
  - INTENTIONAL SELF-INJURY [None]
  - SUICIDE ATTEMPT [None]
